FAERS Safety Report 9839904 (Version 1)
Quarter: 2014Q1

REPORT INFORMATION
  Report Type: Spontaneous
  Country: US (occurrence: US)
  Receive Date: 20140124
  Receipt Date: 20140124
  Transmission Date: 20141002
  Serious: Yes (Hospitalization, Other)
  Sender: FDA-Public Use
  Company Number: US-ASTRAZENECA-2014SE04496

PATIENT
  Age: 57 Year
  Sex: Female
  Weight: 97.5 kg

DRUGS (13)
  1. LISINOPRIL HCTZ [Suspect]
     Indication: BLOOD PRESSURE ABNORMAL
     Dosage: 20 +12.5 MG BID
     Route: 048
     Dates: start: 2004
  2. TOPROL XL [Suspect]
     Indication: HYPERTENSION
     Route: 048
     Dates: start: 2009
  3. OMEPRAZOLE [Suspect]
     Indication: HYPERCHLORHYDRIA
     Route: 048
     Dates: start: 1997, end: 2013
  4. VITAMIN D 3 OTC [Concomitant]
     Indication: ANAEMIA
     Dosage: NATURE MADE, 1000 IUD DAILY
     Route: 048
     Dates: start: 2005
  5. VITAMIN D 3 OTC [Concomitant]
     Indication: NEOPLASM MALIGNANT
     Dosage: NATURE MADE, 1000 IUD DAILY
     Route: 048
     Dates: start: 2005
  6. AMLODIPINE BESYLATE [Concomitant]
     Indication: HYPERTENSION
     Route: 048
     Dates: start: 2009
  7. AMLODIPINE BESYLATE [Concomitant]
     Indication: STRESS
     Route: 048
     Dates: start: 2009
  8. VITAMIN B 12 [Concomitant]
     Indication: ANAEMIA
     Route: 048
     Dates: start: 2005
  9. LOSARTAN [Concomitant]
     Indication: BLOOD PRESSURE ABNORMAL
     Route: 048
     Dates: start: 2009
  10. ASPIRIN [Concomitant]
     Indication: ISCHAEMIC HEART DISEASE PROPHYLAXIS
     Route: 048
     Dates: start: 2013
  11. CLONAZEPAM [Concomitant]
     Indication: MENOPAUSE
     Route: 048
     Dates: start: 2010
  12. CLONAZEPAM [Concomitant]
     Indication: SLEEP DISORDER
     Route: 048
     Dates: start: 2010
  13. ATORVASTATIN [Concomitant]
     Indication: BLOOD PRESSURE ABNORMAL
     Route: 048
     Dates: start: 2009

REACTIONS (9)
  - Colon cancer [Unknown]
  - Haemorrhage [Unknown]
  - Heart rate irregular [Unknown]
  - Anaemia [Unknown]
  - Red blood cell count decreased [Unknown]
  - Uterine leiomyoma [Unknown]
  - Constipation [Unknown]
  - Drug dose omission [Unknown]
  - Drug ineffective [Unknown]
